FAERS Safety Report 5984872-5 (Version None)
Quarter: 2008Q4

REPORT INFORMATION
  Report Type: 
  Country: None (occurrence: None)
  Receive Date: 20081208
  Receipt Date: 20080313
  Transmission Date: 20090506
  Serious: No
  Sender: FDA-Public Use
  Company Number: US-AMGEN-KDL262423

PATIENT
  Sex: Male

DRUGS (5)
  1. ENBREL [Suspect]
     Indication: RHEUMATOID ARTHRITIS
     Route: 058
     Dates: start: 19910801
  2. ASCORBIC ACID [Concomitant]
  3. MOTRIN [Concomitant]
  4. MULTI-VITAMINS [Concomitant]
  5. ZINC [Concomitant]

REACTIONS (2)
  - BACK PAIN [None]
  - INTERVERTEBRAL DISC PROTRUSION [None]
